FAERS Safety Report 6702833-5 (Version None)
Quarter: 2010Q2

REPORT INFORMATION
  Report Type: 
  Country: None (occurrence: None)
  Receive Date: 20100429
  Receipt Date: 20100429
  Transmission Date: 20101027
  Serious: Yes (Other)
  Sender: FDA-Public Use
  Company Number: None

PATIENT
  Sex: Female
  Weight: 54.4316 kg

DRUGS (1)
  1. TERBENAFINE  250MG TEVA 93-7294 [Suspect]
     Indication: ONYCHOMYCOSIS
     Dosage: ONE TABLET DAILY PO
     Route: 048
     Dates: start: 20100306, end: 20100426

REACTIONS (2)
  - DYSGEUSIA [None]
  - PARAESTHESIA ORAL [None]
